FAERS Safety Report 10414863 (Version 1)
Quarter: 2014Q2

REPORT INFORMATION
  Report Type: Spontaneous
  Country: US (occurrence: None)
  Receive Date: 20140604
  Receipt Date: 20140604
  Transmission Date: 20141212
  Serious: No
  Sender: FDA-Public Use
  Company Number: 163-POMAL-14033783

PATIENT
  Age: 70 Year
  Sex: Female
  Weight: 53.1 kg

DRUGS (8)
  1. POMALYST [Suspect]
     Indication: PLASMA CELL MYELOMA
     Route: 048
     Dates: start: 20131118
  2. LEVOFLOXACIN (LEVOFLOXACIN) [Concomitant]
  3. METHYLPREDNISOLONE (METHYLPREDNISOLONE) [Concomitant]
  4. METHADONE HCL (METHADONE HYDROCHLORIDE) [Concomitant]
  5. HYDROCODONE/ACETAMINOPHEN (REMEDEINE) [Concomitant]
  6. AZITHROMYCIN (AZITHROMYCIN) [Concomitant]
  7. AMLODIPINE BESYLATE (AMLODIPINE BESYLATE) [Concomitant]
  8. DEXAMETHASONE (DEXAMETHASONE) [Concomitant]

REACTIONS (2)
  - Sinus congestion [None]
  - Oropharyngeal pain [None]
